FAERS Safety Report 14249012 (Version 5)
Quarter: 2018Q3

REPORT INFORMATION
  Report Type: Spontaneous
  Country: DE (occurrence: DE)
  Receive Date: 20171204
  Receipt Date: 20180713
  Transmission Date: 20181010
  Serious: Yes (Hospitalization)
  Sender: FDA-Public Use
  Company Number: DE-BAYER-2017-218678

PATIENT
  Age: 56 Year
  Sex: Male

DRUGS (2)
  1. ULTRAVIST [Suspect]
     Active Substance: IOPROMIDE
     Indication: CHEST PAIN
  2. ULTRAVIST [Suspect]
     Active Substance: IOPROMIDE
     Indication: COMPUTERISED TOMOGRAM THORAX
     Dosage: 50 ML, ONCE; IN TOTAL
     Route: 042
     Dates: start: 20171107, end: 20171107

REACTIONS (6)
  - Product quality issue [Unknown]
  - Cerebrovascular accident [Unknown]
  - Pruritus [Recovered/Resolved]
  - Cerebral artery occlusion [Unknown]
  - Hemiparesis [Unknown]
  - Dysaesthesia [Unknown]

NARRATIVE: CASE EVENT DATE: 20171107
